FAERS Safety Report 14160456 (Version 1)
Quarter: 2017Q4

REPORT INFORMATION
  Report Type: Spontaneous
  Country: TW (occurrence: TW)
  Receive Date: 20171104
  Receipt Date: 20171104
  Transmission Date: 20180321
  Serious: Yes (Other)
  Sender: FDA-Public Use
  Company Number: TW-ACCORD-060646

PATIENT
  Sex: Male

DRUGS (2)
  1. TACROLIMUS. [Suspect]
     Active Substance: TACROLIMUS
     Indication: PANCREAS TRANSPLANT
     Route: 064
  2. LABETALOL [Suspect]
     Active Substance: LABETALOL\LABETALOL HYDROCHLORIDE
     Indication: BLOOD PRESSURE INCREASED
     Dosage: INCREASED LABETALOL DOSAGE UP TO 200 MG EVERY 6 H,
     Route: 064

REACTIONS (3)
  - Foetal heart rate decreased [Unknown]
  - Blood pressure decreased [Unknown]
  - Foetal exposure during pregnancy [Unknown]
